FAERS Safety Report 7577996 (Version 3)
Quarter: 2013Q1

REPORT INFORMATION
  Report Type: Report from Study
  Country: US (occurrence: US)
  Receive Date: 20100909
  Receipt Date: 20130308
  Transmission Date: 20140127
  Serious: Yes (Hospitalization, Other)
  Sender: FDA-Public Use
  Company Number: PHHO2010US13535

PATIENT
  Age: 60 Year
  Sex: Male
  Weight: 102 kg

DRUGS (12)
  1. BLINDED ALISKIREN [Suspect]
     Indication: CORONARY ARTERY DISEASE
     Dosage: CODE NOT BROKEN
     Route: 048
     Dates: start: 20100709, end: 20100827
  2. BLINDED NO TREATMENT RECEIVED [Suspect]
     Indication: CORONARY ARTERY DISEASE
     Dosage: CODE NOT BROKEN
     Route: 048
     Dates: start: 20100709, end: 20100827
  3. BLINDED PLACEBO [Suspect]
     Indication: CORONARY ARTERY DISEASE
     Dosage: CODE NOT BROKEN
     Route: 048
     Dates: start: 20100709, end: 20100827
  4. METOPROLOL [Concomitant]
  5. HYDROCHLOROTHIAZIDE [Concomitant]
  6. CILOSTAZOL [Concomitant]
  7. ASPIRIN [Concomitant]
  8. TERAZOSIN [Concomitant]
  9. VENLAFAXINE [Concomitant]
  10. BUPROPION [Concomitant]
  11. SIMVASTATIN [Concomitant]
  12. ISOSORBIDE MONONITRATE [Concomitant]

REACTIONS (2)
  - Non-cardiac chest pain [Recovered/Resolved with Sequelae]
  - Pruritus [Recovering/Resolving]
